FAERS Safety Report 9434630 (Version 1)
Quarter: 2013Q3

REPORT INFORMATION
  Report Type: Spontaneous
  Country: US (occurrence: None)
  Receive Date: 20130731
  Receipt Date: 20130731
  Transmission Date: 20140515
  Serious: Yes (Hospitalization)
  Sender: FDA-Public Use
  Company Number: None

PATIENT
  Age: 72 Year
  Sex: Male
  Weight: 86.5 kg

DRUGS (2)
  1. PHENYTOIN [Suspect]
     Dosage: 100MG Q8H OTHER
     Route: 050
     Dates: start: 20130620, end: 20130626
  2. LEVETIRACETAM [Suspect]
     Dosage: 250 MG, BID, PO.
     Dates: start: 20130629, end: 20130630

REACTIONS (2)
  - Pyrexia [None]
  - Deep vein thrombosis [None]
